FAERS Safety Report 8557847-X (Version None)
Quarter: 2012Q3

REPORT INFORMATION
  Report Type: 
  Country: None (occurrence: None)
  Receive Date: 20120801
  Receipt Date: 20120724
  Transmission Date: 20120928
  Serious: Yes (Hospitalization)
  Sender: FDA-Public Use
  Company Number: US-GLAXOSMITHKLINE-A0987721A

PATIENT
  Sex: Female

DRUGS (2)
  1. VENTOLIN [Suspect]
     Dosage: 90MCG UNKNOWN
     Route: 065
     Dates: start: 20110719
  2. ADVAIR [Suspect]
     Route: 065
     Dates: start: 20110719

REACTIONS (1)
  - THROAT TIGHTNESS [None]
